FAERS Safety Report 8029767-0 (Version None)
Quarter: 2012Q1

REPORT INFORMATION
  Report Type: 
  Country: None (occurrence: None)
  Receive Date: 20120109
  Receipt Date: 20111230
  Transmission Date: 20120608
  Serious: Yes (Hospitalization, Other)
  Sender: FDA-Public Use
  Company Number: US-BAYER-2012-000793

PATIENT
  Sex: Female

DRUGS (2)
  1. YAZ [Suspect]
     Dosage: UNK
     Dates: start: 20010101
  2. YASMIN [Suspect]
     Dosage: UNK
     Dates: start: 20010101

REACTIONS (6)
  - GALLBLADDER DISORDER [None]
  - ANHEDONIA [None]
  - PAIN [None]
  - INJURY [None]
  - PANCREATITIS [None]
  - ANXIETY [None]
